FAERS Safety Report 5159165-9 (Version None)
Quarter: 2006Q4

REPORT INFORMATION
  Report Type: 
  Country: None (occurrence: None)
  Receive Date: 20061116
  Receipt Date: 20061108
  Transmission Date: 20070319
  Serious: Yes (Hospitalization, Other)
  Sender: FDA-Public Use
  Company Number: FRWYE109328APR03

PATIENT
  Age: 55 Year
  Sex: Male

DRUGS (3)
  1. RAPAMUNE [Suspect]
     Indication: PROPHYLAXIS AGAINST TRANSPLANT REJECTION
     Dosage: 12 MG 1X PER 1 DAY ORAL
     Route: 048
     Dates: start: 20030211
  2. IMURAN [Concomitant]
  3. PREDNISOLONE [Concomitant]

REACTIONS (2)
  - EXTRAPYRAMIDAL DISORDER [None]
  - INTENTION TREMOR [None]
